FAERS Safety Report 7019567-2 (Version None)
Quarter: 2010Q3

REPORT INFORMATION
  Report Type: 
  Country: None (occurrence: None)
  Receive Date: 20100928
  Receipt Date: 20100928
  Transmission Date: 20110219
  Serious: Yes (Congenital Anomaly)
  Sender: FDA-Public Use
  Company Number: None

PATIENT
  Sex: Female

DRUGS (1)
  1. CELEXA [Suspect]
     Indication: DEPRESSION
     Dosage: 60MG DAILY PO
     Route: 048

REACTIONS (2)
  - MATERNAL DRUGS AFFECTING FOETUS [None]
  - TOOTH HYPOPLASIA [None]
